FAERS Safety Report 21740553 (Version 2)
Quarter: 2022Q4

REPORT INFORMATION
  Report Type: Spontaneous
  Country: US (occurrence: US)
  Receive Date: 20221216
  Receipt Date: 20221222
  Transmission Date: 20230112
  Serious: Yes (Life-Threatening, Other)
  Sender: FDA-Public Use
  Company Number: US-PFIZER INC-202201372621

PATIENT
  Age: 68 Year
  Sex: Male

DRUGS (2)
  1. ZYVOX [Suspect]
     Active Substance: LINEZOLID
     Indication: Staphylococcal osteomyelitis
     Dosage: UNK
  2. JARDIANCE [Suspect]
     Active Substance: EMPAGLIFLOZIN
     Dosage: UNK

REACTIONS (7)
  - Erectile dysfunction [Unknown]
  - Sepsis [Unknown]
  - Lactic acidosis [Recovering/Resolving]
  - Thrombocytopenia [Unknown]
  - Agranulocytosis [Unknown]
  - Pancytopenia [Not Recovered/Not Resolved]
  - Off label use [Unknown]
